FAERS Safety Report 4269574-8 (Version None)
Quarter: 2004Q1

REPORT INFORMATION
  Report Type: 
  Country: None (occurrence: None)
  Receive Date: 20040112
  Receipt Date: 20040106
  Transmission Date: 20041129
  Serious: Yes (Life-Threatening)
  Sender: FDA-Public Use
  Company Number: 2004-111483-NL

PATIENT
  Age: 52 Year
  Sex: Female

DRUGS (1)
  1. MIRTAZAPINE [Suspect]
     Indication: DEPRESSION
     Dosage: 30 MG, ORAL
     Route: 048
     Dates: start: 20031015, end: 20031203

REACTIONS (3)
  - CEREBROVASCULAR ACCIDENT [None]
  - DYSPHASIA [None]
  - FACIAL PARESIS [None]
